FAERS Safety Report 7361497-0 (Version None)
Quarter: 2011Q1

REPORT INFORMATION
  Report Type: 
  Country: None (occurrence: None)
  Receive Date: 20110309
  Receipt Date: 20110225
  Transmission Date: 20110831
  Serious: Yes (Hospitalization)
  Sender: FDA-Public Use
  Company Number: 027084

PATIENT
  Sex: Female

DRUGS (13)
  1. TRIHEXYPHENIDYL HCL [Concomitant]
  2. SERENACE [Concomitant]
  3. MAGNESIUM OXIDE [Concomitant]
  4. CELTECT [Concomitant]
  5. RISPERDAL [Concomitant]
  6. LANDSEN [Concomitant]
  7. PANTOSIN [Concomitant]
  8. KEPPRA [Suspect]
     Indication: EPILEPSY
     Dosage: 500 MG, BID, ORAL
     Route: 048
     Dates: start: 20110121, end: 20110203
  9. DEPAKENE [Concomitant]
  10. AKINETON [Concomitant]
  11. MYSTAN [Concomitant]
  12. GABAPENTIN [Suspect]
     Indication: EPILEPSY
     Dosage: 300 MG, TID, ORAL
     Route: 048
     Dates: start: 20110127, end: 20110203
  13. HIRNAMIN [Concomitant]

REACTIONS (1)
  - TOXIC SKIN ERUPTION [None]
